FAERS Safety Report 7234307-X (Version None)
Quarter: 2011Q1

REPORT INFORMATION
  Report Type: 
  Country: None (occurrence: None)
  Receive Date: 20110119
  Receipt Date: 20110109
  Transmission Date: 20110831
  Serious: No
  Sender: FDA-Public Use
  Company Number: US-B.I. PHARMACEUTICALS,INC./RIDGEFIELD-2011-BP-00866BP

PATIENT
  Sex: Female

DRUGS (6)
  1. ASA [Concomitant]
     Indication: PROPHYLAXIS
  2. LOVASA (FISH OIL) [Concomitant]
     Indication: PROPHYLAXIS
  3. PRADAXA [Suspect]
     Indication: ATRIAL FIBRILLATION
     Dosage: 300 MG
     Route: 048
     Dates: start: 20101220
  4. ARYTHMOL [Concomitant]
     Indication: ATRIAL FIBRILLATION
  5. METOPROLOL [Concomitant]
     Indication: HYPERTENSION
  6. SIMVASTATIN [Concomitant]
     Indication: BLOOD CHOLESTEROL INCREASED

REACTIONS (2)
  - DYSPEPSIA [None]
  - COUGH [None]
